FAERS Safety Report 6836560-0 (Version None)
Quarter: 2010Q3

REPORT INFORMATION
  Report Type: 
  Country: None (occurrence: None)
  Receive Date: 20100708
  Receipt Date: 20100622
  Transmission Date: 20110219
  Serious: Yes (Hospitalization)
  Sender: FDA-Public Use
  Company Number: 2010AM002273

PATIENT
  Age: 57 Year
  Sex: Female
  Weight: 72.5755 kg

DRUGS (19)
  1. SYMLIN [Suspect]
     Indication: TYPE 2 DIABETES MELLITUS
     Dosage: 120 MCG;TID;SC
     Route: 058
     Dates: start: 20100101
  2. SYMLIN [Suspect]
     Dosage: 60 MCG; BIC; SC, 45 MCG; BIC; SC, 30 MCG; BIC; SC, 15 MCG; TID; SC
     Route: 058
     Dates: start: 20100101, end: 20100101
  3. SYMLIN [Suspect]
     Dosage: 60 MCG; BIC; SC, 45 MCG; BIC; SC, 30 MCG; BIC; SC, 15 MCG; TID; SC
     Route: 058
     Dates: start: 20100101, end: 20100101
  4. SYMLIN [Suspect]
     Dosage: 60 MCG; BIC; SC, 45 MCG; BIC; SC, 30 MCG; BIC; SC, 15 MCG; TID; SC
     Route: 058
     Dates: start: 20100101, end: 20100101
  5. SYMLIN [Suspect]
     Dosage: 60 MCG; BIC; SC, 45 MCG; BIC; SC, 30 MCG; BIC; SC, 15 MCG; TID; SC
     Route: 058
     Dates: start: 20100326, end: 20100101
  6. LANTUS [Concomitant]
  7. HUMALOG [Concomitant]
  8. SPIRIVA [Concomitant]
  9. STOOL SOFTENER [Concomitant]
  10. FISH OIL [Concomitant]
  11. POTASSIUM CHLORIDE [Concomitant]
  12. ADVAIR DISKUS 100/50 [Concomitant]
  13. OXYGEN [Concomitant]
  14. CHEMOTHERAPY [Concomitant]
  15. NOVOLOG [Concomitant]
  16. XANAX [Concomitant]
  17. PERCOCET [Concomitant]
  18. PHENTANYL PATCH [Concomitant]
  19. LASIX [Concomitant]

REACTIONS (6)
  - BLOOD GLUCOSE INCREASED [None]
  - FUNGAL INFECTION [None]
  - OVARIAN CANCER RECURRENT [None]
  - PLATELET COUNT DECREASED [None]
  - PNEUMONIA [None]
  - RESPIRATORY FAILURE [None]
